FAERS Safety Report 23060655 (Version 2)
Quarter: 2023Q4

REPORT INFORMATION
  Report Type: Spontaneous
  Country: US (occurrence: US)
  Receive Date: 20231012
  Receipt Date: 20231128
  Transmission Date: 20240110
  Serious: Yes (Other)
  Sender: FDA-Public Use
  Company Number: US-PFIZER INC-PV202300164928

PATIENT
  Age: 47 Year
  Sex: Male

DRUGS (1)
  1. RETACRIT [Suspect]
     Active Substance: EPOETIN ALFA-EPBX
     Dosage: 40000 IU/ML, WEEKLY (EVERY WEEK X 4 WEEKS)

REACTIONS (4)
  - Renal failure [Unknown]
  - Colon cancer [Unknown]
  - Localised infection [Unknown]
  - Knee operation [Unknown]
